FAERS Safety Report 17555642 (Version 1)
Quarter: 2020Q1

REPORT INFORMATION
  Report Type: Spontaneous
  Country: US (occurrence: US)
  Receive Date: 20200318
  Receipt Date: 20200318
  Transmission Date: 20200409
  Serious: Yes (Other)
  Sender: FDA-Public Use
  Company Number: US-ROCHE-2570235

PATIENT
  Sex: Male

DRUGS (1)
  1. ACTEMRA [Suspect]
     Active Substance: TOCILIZUMAB
     Indication: PSORIASIS
     Route: 058
     Dates: start: 20191212

REACTIONS (3)
  - Retinal injury [Unknown]
  - Intentional product use issue [Unknown]
  - Off label use [Unknown]
